FAERS Safety Report 15536342 (Version 3)
Quarter: 2018Q4

REPORT INFORMATION
  Report Type: Spontaneous
  Country: US (occurrence: US)
  Receive Date: 20181022
  Receipt Date: 20181109
  Transmission Date: 20190205
  Serious: Yes (Hospitalization)
  Sender: FDA-Public Use
  Company Number: US-HORIZON-RAV-0177-2018

PATIENT
  Age: 8 Year
  Sex: Male
  Weight: 26.5 kg

DRUGS (5)
  1. L-CITRULLINE [Concomitant]
     Active Substance: CITRULLINE
     Dosage: 1.1 GRAMS, , EVERY 6 HOURS
     Dates: start: 20180428, end: 20181101
  2. RAVICTI [Suspect]
     Active Substance: GLYCEROL PHENYLBUTYRATE
     Indication: ORNITHINE TRANSCARBAMOYLASE DEFICIENCY
     Dosage: 1.0 ML TID
     Route: 048
     Dates: start: 20180416, end: 20181105
  3. ONDANSETRON [Concomitant]
     Active Substance: ONDANSETRON
     Dosage: 4 MG
     Route: 048
  4. PRO-PHREE POWDER [Concomitant]
     Dosage: SEE NARRATIVE
     Dates: start: 20180725
  5. CYCLINEX-2 POWDER [Concomitant]
     Dosage: SEE NARRATIVE
     Route: 048
     Dates: start: 20171013

REACTIONS (2)
  - Hyperammonaemia [Recovering/Resolving]
  - Gastroenteritis [Unknown]

NARRATIVE: CASE EVENT DATE: 20181012
